FAERS Safety Report 23717536 (Version 1)
Quarter: 2024Q2

REPORT INFORMATION
  Report Type: Spontaneous
  Country: FR (occurrence: FR)
  Receive Date: 20240408
  Receipt Date: 20240408
  Transmission Date: 20240716
  Serious: Yes (Death)
  Sender: FDA-Public Use
  Company Number: None

PATIENT
  Age: 66 Year
  Sex: Female
  Weight: 52 kg

DRUGS (7)
  1. DOTAREM [Suspect]
     Active Substance: GADOTERATE MEGLUMINE
     Indication: Magnetic resonance imaging
     Route: 042
     Dates: start: 20231215, end: 20231215
  2. RIVOTRIL [Suspect]
     Active Substance: CLONAZEPAM
     Indication: Partial seizures
     Route: 042
     Dates: start: 20231211, end: 20231211
  3. CLOBAZAM [Suspect]
     Active Substance: CLOBAZAM
     Indication: Partial seizures
     Route: 048
     Dates: start: 20231211, end: 20240117
  4. IOMERON [Suspect]
     Active Substance: IOMEPROL
     Indication: Computerised tomogram head
     Route: 042
     Dates: start: 20231211, end: 20231211
  5. SOLUPRED [Concomitant]
     Indication: Product used for unknown indication
  6. PREDNISONE [Concomitant]
     Active Substance: PREDNISONE
     Indication: Product used for unknown indication
  7. KEPPRA [Concomitant]
     Active Substance: LEVETIRACETAM
     Indication: Product used for unknown indication

REACTIONS (1)
  - Erythema multiforme [Fatal]

NARRATIVE: CASE EVENT DATE: 20240105
